FAERS Safety Report 10335011 (Version 2)
Quarter: 2014Q4

REPORT INFORMATION
  Report Type: Spontaneous
  Country: US (occurrence: US)
  Receive Date: 20140723
  Receipt Date: 20141223
  Transmission Date: 20150528
  Serious: Yes (Hospitalization)
  Sender: FDA-Public Use
  Company Number: US-BAYER-2014-108045

PATIENT
  Age: 20 Year
  Sex: Female
  Weight: 38.95 kg

DRUGS (1)
  1. MIRENA [Suspect]
     Active Substance: LEVONORGESTREL
     Indication: CONTRACEPTION
     Dosage: 20 MCG/24HR, CONT
     Route: 015
     Dates: start: 20100115, end: 20130805

REACTIONS (18)
  - Device defective [None]
  - Menstruation irregular [None]
  - Device issue [None]
  - Fear [Not Recovered/Not Resolved]
  - Activities of daily living impaired [Not Recovered/Not Resolved]
  - Crying [None]
  - Emotional distress [Not Recovered/Not Resolved]
  - Infertility female [None]
  - Urinary tract infection [None]
  - Dyspareunia [None]
  - Dysmenorrhoea [None]
  - Pain [None]
  - Embedded device [None]
  - Menorrhagia [None]
  - Injury [None]
  - Abdominal pain lower [None]
  - Off label use [None]
  - Depression [None]

NARRATIVE: CASE EVENT DATE: 20100115
